FAERS Safety Report 11362973 (Version 1)
Quarter: 2015Q3

REPORT INFORMATION
  Report Type: Spontaneous
  Country: US (occurrence: US)
  Receive Date: 20150810
  Receipt Date: 20150810
  Transmission Date: 20151125
  Serious: No
  Sender: FDA-Public Use
  Company Number: US-AMEDRA PHARMACEUTICALS LLC-2015AMD00042

PATIENT
  Age: 59 Year
  Sex: Female
  Weight: 90.7 kg

DRUGS (7)
  1. ALBENZA [Suspect]
     Active Substance: ALBENDAZOLE
     Indication: INFECTION PARASITIC
     Dosage: 400 MG, 3X/DAY
     Route: 048
     Dates: start: 20141110, end: 20141124
  2. HEMEVITE [Concomitant]
     Dosage: 1 UNK, UNK
     Dates: start: 20141202
  3. ARMOUR THYROID [Concomitant]
     Active Substance: THYROID, PORCINE\THYROID, UNSPECIFIED
     Dosage: 30 MG, 1X/DAY
     Dates: start: 2005
  4. HEMEVITE [Concomitant]
     Dosage: 1 DOSAGE UNITS, UNK
     Dates: end: 20141202
  5. FERRITIN [Concomitant]
     Active Substance: FERRITIN
     Dosage: 5 MG, UNK
     Dates: end: 20141202
  6. ARMOUR THYROID [Concomitant]
     Active Substance: THYROID, PORCINE\THYROID, UNSPECIFIED
     Dosage: 60 MG, 1X/DAY
     Dates: start: 2005
  7. FERRITIN [Concomitant]
     Active Substance: FERRITIN
     Dosage: 5 MG, 1X/DAY
     Dates: start: 20141202

REACTIONS (1)
  - Alopecia [Not Recovered/Not Resolved]

NARRATIVE: CASE EVENT DATE: 20141202
